FAERS Safety Report 11032107 (Version 2)
Quarter: 2015Q2

REPORT INFORMATION
  Report Type: Report from Study
  Country: US (occurrence: US)
  Receive Date: 20150415
  Receipt Date: 20150421
  Transmission Date: 20150821
  Serious: Yes (Hospitalization)
  Sender: FDA-Public Use
  Company Number: US-ROCHE-1563534

PATIENT
  Age: 37 Year
  Sex: Female
  Weight: 61 kg

DRUGS (8)
  1. TRASTUZUMAB [Suspect]
     Active Substance: TRASTUZUMAB
     Indication: BREAST CANCER
     Dosage: CYCLE 1: OVER 90 MINUTES ON DAY ONE
     Route: 042
     Dates: start: 20150305
  2. DOCETAXEL. [Suspect]
     Active Substance: DOCETAXEL
     Indication: BREAST CANCER
     Dosage: 60 MIN ON DAY 1,  05/MAR/2015, RECEIVED LAST DOSE DECOTAXEL PRIOR TO SAE
     Route: 042
     Dates: start: 20150304
  3. ANASTROZOLE. [Concomitant]
     Active Substance: ANASTROZOLE
     Route: 048
     Dates: start: 20150304
  4. CARBOPLATIN. [Suspect]
     Active Substance: CARBOPLATIN
     Indication: BREAST CANCER
     Dosage: 6 MG/ML/MIN OVER 30-60MIN ON DAY 1, 05/MAR/2015, RECEIVED LAST DOSE CARBOPLATIN PRIOR TO SAE.
     Route: 042
     Dates: start: 20150305
  5. PERTUZUMAB [Suspect]
     Active Substance: PERTUZUMAB
     Dosage: CYCLE 2-6: OVER 30-60 MINUTES ON DAY 1, 05/MAR/2015, RECEIVED LAST DOSE PERTUZUMAB PRIOR TO SAE
     Route: 042
  6. TRASTUZUMAB [Suspect]
     Active Substance: TRASTUZUMAB
     Dosage: CYCLE 2-6: OVER 30-60 MINUTES ON DAY 1, 05/MAR/2015, RECEIVED LAST DOSE TRASTUZUMAB PRIOR TO SAE
     Route: 042
  7. GOSERELIN [Concomitant]
     Active Substance: GOSERELIN
     Route: 065
     Dates: start: 20150304
  8. PERTUZUMAB [Suspect]
     Active Substance: PERTUZUMAB
     Indication: BREAST CANCER
     Dosage: CYCLE 1: OVER 60 MINUTES ON DAY ONE
     Route: 042
     Dates: start: 20150305

REACTIONS (1)
  - Enterocolitis infectious [Recovering/Resolving]

NARRATIVE: CASE EVENT DATE: 20150310
